FAERS Safety Report 16179765 (Version 1)
Quarter: 2019Q2

REPORT INFORMATION
  Report Type: Spontaneous
  Country: US (occurrence: US)
  Receive Date: 20190409
  Receipt Date: 20190409
  Transmission Date: 20190711
  Serious: No
  Sender: FDA-Public Use
  Company Number: None

PATIENT
  Age: 61 Year
  Sex: Female
  Weight: 139.5 kg

DRUGS (7)
  1. LISINOPRIL/HCTZ [Concomitant]
     Active Substance: HYDROCHLOROTHIAZIDE\LISINOPRIL
  2. AMLODIPINE [Concomitant]
     Active Substance: AMLODIPINE BESYLATE
  3. AMBIEN [Concomitant]
     Active Substance: ZOLPIDEM TARTRATE
  4. REMICADE [Suspect]
     Active Substance: INFLIXIMAB
     Indication: PSORIATIC ARTHROPATHY
     Dosage: ?          OTHER ROUTE:INFUSION?
  5. PERCOCET [Concomitant]
     Active Substance: ACETAMINOPHEN\OXYCODONE HYDROCHLORIDE
  6. LEVOTHYROXINE. [Concomitant]
     Active Substance: LEVOTHYROXINE
  7. WELLBUTRIN XL [Concomitant]
     Active Substance: BUPROPION HYDROCHLORIDE

REACTIONS (15)
  - Headache [None]
  - Fatigue [None]
  - Asthenia [None]
  - Apathy [None]
  - Feelings of worthlessness [None]
  - Feeling guilty [None]
  - Negative thoughts [None]
  - Anger [None]
  - Flatulence [None]
  - Nasal congestion [None]
  - Muscle spasms [None]
  - Depressed mood [None]
  - Agitation [None]
  - Back pain [None]
  - Decreased appetite [None]

NARRATIVE: CASE EVENT DATE: 20190312
